FAERS Safety Report 15538074 (Version 2)
Quarter: 2018Q4

REPORT INFORMATION
  Report Type: Spontaneous
  Country: FR (occurrence: FR)
  Receive Date: 20181022
  Receipt Date: 20181025
  Transmission Date: 20190205
  Serious: Yes (Death, Hospitalization)
  Sender: FDA-Public Use
  Company Number: FR-PFIZER INC-2018425259

PATIENT
  Age: 37 Year
  Sex: Male
  Weight: 91 kg

DRUGS (7)
  1. PAROXETINE. [Suspect]
     Active Substance: PAROXETINE
     Dosage: 560 MG, UNK
     Route: 048
     Dates: start: 20180808, end: 20180808
  2. ALPRAZOLAM. [Suspect]
     Active Substance: ALPRAZOLAM
     Dosage: 15 MG
     Route: 048
     Dates: start: 20180808, end: 20180808
  3. PREDNISONE. [Suspect]
     Active Substance: PREDNISONE
     Dosage: 600 MG, UNK
     Route: 048
     Dates: start: 20180808, end: 20180808
  4. COLCHICINE. [Suspect]
     Active Substance: COLCHICINE
     Dosage: 20 AT 40MG
     Route: 048
     Dates: start: 20180808, end: 20180808
  5. NUROFEN [IBUPROFEN] [Suspect]
     Active Substance: IBUPROFEN
     Dosage: 6 DF, UNK
     Route: 048
     Dates: start: 20180808, end: 20180808
  6. TRIMEBUTINE MALEATE [Suspect]
     Active Substance: TRIMEBUTINE MALEATE
     Dosage: 2000 MG, UNK
     Route: 048
     Dates: start: 20180808, end: 20180808
  7. DESLORATADINE. [Suspect]
     Active Substance: DESLORATADINE
     Dosage: 150 MG, UNK
     Route: 048
     Dates: start: 20180808, end: 20180808

REACTIONS (5)
  - Completed suicide [Fatal]
  - Multiple organ dysfunction syndrome [Fatal]
  - Intentional product misuse [Fatal]
  - Vasoplegia syndrome [Fatal]
  - Cardiogenic shock [Fatal]

NARRATIVE: CASE EVENT DATE: 20180808
